FAERS Safety Report 4503328-X (Version None)
Quarter: 2004Q4

REPORT INFORMATION
  Report Type: 
  Country: None (occurrence: None)
  Receive Date: 20041112
  Receipt Date: 20041102
  Transmission Date: 20050328
  Serious: Yes (Hospitalization)
  Sender: FDA-Public Use
  Company Number: S04-USA-04604-01

PATIENT
  Age: 50 Year
  Sex: Female

DRUGS (5)
  1. LEXAPRO [Suspect]
     Indication: ANXIETY
     Dosage: 10 MG QD PO
     Route: 048
     Dates: start: 20030101
  2. LEXAPRO [Suspect]
     Indication: DEPRESSION
     Dosage: 10 MG QD PO
     Route: 048
     Dates: start: 20030101
  3. CLONIDINE [Concomitant]
  4. KEPPRA [Concomitant]
  5. TOPAMAX [Concomitant]

REACTIONS (7)
  - AUTONOMIC NERVOUS SYSTEM IMBALANCE [None]
  - DIZZINESS [None]
  - DIZZINESS POSTURAL [None]
  - HYPERTENSION [None]
  - HYPOTENSION [None]
  - SYNCOPE [None]
  - VOCAL CORD PARALYSIS [None]
